FAERS Safety Report 7224117-1 (Version None)
Quarter: 2011Q1

REPORT INFORMATION
  Report Type: 
  Country: None (occurrence: None)
  Receive Date: 20110106
  Receipt Date: 20110106
  Transmission Date: 20110831
  Serious: Yes (Life-Threatening, Other)
  Sender: FDA-Public Use
  Company Number: None

PATIENT
  Age: 59 Year
  Sex: Female
  Weight: 79.3795 kg

DRUGS (1)
  1. SEROQUEL XR [Suspect]
     Indication: ANXIETY
     Dosage: 50 MG 1 PER DAY PO
     Route: 048
     Dates: start: 20101108, end: 20101111

REACTIONS (2)
  - DYSPNOEA [None]
  - CYANOSIS [None]
